FAERS Safety Report 5376025-9 (Version None)
Quarter: 2007Q2

REPORT INFORMATION
  Report Type: 
  Country: None (occurrence: None)
  Receive Date: 20070628
  Receipt Date: 20070618
  Transmission Date: 20071010
  Serious: Yes (Other)
  Sender: FDA-Public Use
  Company Number: B0476514A

PATIENT
  Age: 47 Year
  Sex: Male

DRUGS (5)
  1. ABACAVIR SULFATE [Suspect]
     Indication: HIV INFECTION
  2. LAMIVUDINE [Concomitant]
  3. LOPINAVIR + RITONAVIR [Concomitant]
  4. ZIDOVUDINE [Concomitant]
  5. DELAVIRDINE MESYLATE [Concomitant]

REACTIONS (1)
  - MANIA [None]
